FAERS Safety Report 14007096 (Version 1)
Quarter: 2017Q3

REPORT INFORMATION
  Report Type: Spontaneous
  Country: DE (occurrence: DE)
  Receive Date: 20170925
  Receipt Date: 20170925
  Transmission Date: 20171128
  Serious: Yes (Other)
  Sender: FDA-Public Use
  Company Number: DE-SUN PHARMACEUTICAL INDUSTRIES LTD-2017RR-150575

PATIENT
  Age: 42 Year
  Sex: Female
  Weight: 63 kg

DRUGS (1)
  1. CIPROFLOXACIN. [Suspect]
     Active Substance: CIPROFLOXACIN
     Indication: CYSTITIS NONINFECTIVE
     Dosage: 250 MG, BID, 2 DAILY, 1X IN THE MORNING; 1X EVENING
     Route: 048
     Dates: start: 20170830

REACTIONS (10)
  - Neck pain [Unknown]
  - Vision blurred [Unknown]
  - Asthenia [Unknown]
  - Musculoskeletal pain [Unknown]
  - Back pain [Unknown]
  - Arthralgia [Unknown]
  - Neuralgia [Unknown]
  - Back pain [Unknown]
  - Myalgia [Unknown]
  - Visual impairment [Unknown]

NARRATIVE: CASE EVENT DATE: 201709
